FAERS Safety Report 18756017 (Version 1)
Quarter: 2021Q1

REPORT INFORMATION
  Report Type: Spontaneous
  Country: US (occurrence: US)
  Receive Date: 20210116
  Receipt Date: 20210116
  Transmission Date: 20210419
  Serious: No
  Sender: FDA-Public Use
  Company Number: None

PATIENT
  Age: 78 Year
  Sex: Male
  Weight: 66.15 kg

DRUGS (5)
  1. CENTRUM SILVER [Concomitant]
     Active Substance: MINERALS\VITAMINS
  2. PANTOPRAZOLE [Concomitant]
     Active Substance: PANTOPRAZOLE
  3. DICLOFENAC [Concomitant]
     Active Substance: DICLOFENAC
  4. METHOXSALEN. [Suspect]
     Active Substance: METHOXSALEN
     Indication: CUTANEOUS T-CELL LYMPHOMA
     Dosage: ?          QUANTITY:24 TABLET(S);OTHER FREQUENCY:TWICE WEEKLY;?
     Route: 048
     Dates: start: 20210115
  5. CITRACSL [Concomitant]

REACTIONS (5)
  - Dyspepsia [None]
  - Nausea [None]
  - Product label confusion [None]
  - Product formulation issue [None]
  - Product substitution issue [None]

NARRATIVE: CASE EVENT DATE: 20210115
